FAERS Safety Report 19381493 (Version 2)
Quarter: 2021Q2

REPORT INFORMATION
  Report Type: Spontaneous
  Country: US (occurrence: US)
  Receive Date: 20210607
  Receipt Date: 20210614
  Transmission Date: 20210717
  Serious: No
  Sender: FDA-Public Use
  Company Number: US-PFIZER INC-2021195160

PATIENT
  Age: 44 Year
  Sex: Male
  Weight: 90.72 kg

DRUGS (3)
  1. GABAPENTIN. [Suspect]
     Active Substance: GABAPENTIN
     Indication: BIPOLAR DISORDER
     Dosage: 900 MG, DAILY [THREE 300MG PILLS ORAL A DAY]
     Route: 048
  2. OLANZAPINE. [Suspect]
     Active Substance: OLANZAPINE
     Indication: BIPOLAR DISORDER
     Dosage: 30 MG, 1X/DAY (OLANZAPINE 10MG AND OLANZAPINE 20MG TO EQUAL 30MG)
     Route: 048
     Dates: start: 2013
  3. LITHIUM. [Suspect]
     Active Substance: LITHIUM
     Indication: BIPOLAR DISORDER
     Dosage: 900 MG, DAILY (300MG IN THE MORNING AND 600MG AT NIGHT ORAL)
     Route: 048
     Dates: start: 201907

REACTIONS (2)
  - Nocturnal dyspnoea [Not Recovered/Not Resolved]
  - Condition aggravated [Unknown]

NARRATIVE: CASE EVENT DATE: 2013
